FAERS Safety Report 18884538 (Version 1)
Quarter: 2021Q1

REPORT INFORMATION
  Report Type: Spontaneous
  Country: US (occurrence: US)
  Receive Date: 20210211
  Receipt Date: 20210211
  Transmission Date: 20210420
  Serious: Yes (Death, Other)
  Sender: FDA-Public Use
  Company Number: US-BEH-2021128041

PATIENT
  Age: 17 Year
  Sex: Male

DRUGS (7)
  1. AMPHOTERICIN [Suspect]
     Active Substance: AMPHOTERICIN B
     Indication: STAPHYLOCOCCAL INFECTION
     Route: 065
  2. PIPERACILLIN SODIUM;SULBACTAM SODIUM [Suspect]
     Active Substance: PIPERACILLIN SODIUM\SULBACTAM SODIUM
     Indication: STAPHYLOCOCCAL INFECTION
     Route: 065
  3. HUMAN IMMUNOGLOBULIN (INN) [Suspect]
     Active Substance: HUMAN IMMUNOGLOBULIN G
     Indication: HAEMOPHAGOCYTIC LYMPHOHISTIOCYTOSIS
  4. DEXAMETHASONE. [Suspect]
     Active Substance: DEXAMETHASONE
     Indication: CHRONIC GRANULOMATOUS DISEASE
     Route: 065
  5. MINOCYCLINE [Suspect]
     Active Substance: MINOCYCLINE HYDROCHLORIDE
     Indication: STAPHYLOCOCCAL INFECTION
     Route: 065
  6. HUMAN IMMUNOGLOBULIN (INN) [Suspect]
     Active Substance: HUMAN IMMUNOGLOBULIN G
     Indication: CHRONIC GRANULOMATOUS DISEASE
     Route: 042
  7. DEXAMETHASONE. [Suspect]
     Active Substance: DEXAMETHASONE
     Indication: HAEMOPHAGOCYTIC LYMPHOHISTIOCYTOSIS

REACTIONS (3)
  - No adverse event [Unknown]
  - Drug ineffective for unapproved indication [Fatal]
  - Off label use [Unknown]
